FAERS Safety Report 5487579-6 (Version None)
Quarter: 2007Q4

REPORT INFORMATION
  Report Type: 
  Country: None (occurrence: None)
  Receive Date: 20071015
  Receipt Date: 20071008
  Transmission Date: 20080405
  Serious: Yes (Other)
  Sender: FDA-Public Use
  Company Number: 200719047GDDC

PATIENT
  Age: 72 Year
  Sex: Female

DRUGS (2)
  1. ARAVA [Suspect]
     Indication: RHEUMATOID ARTHRITIS
     Dosage: 10 MG Q2D, PO
     Route: 048
     Dates: start: 20061015
  2. ARAVA [Suspect]
     Indication: RHEUMATOID ARTHRITIS
     Dosage: 20 MG Q2D; PO
     Route: 048
     Dates: start: 20061015

REACTIONS (1)
  - LIVER FUNCTION TEST ABNORMAL [None]
